FAERS Safety Report 9801632 (Version 2)
Quarter: 2014Q1

REPORT INFORMATION
  Report Type: Spontaneous
  Country: NG (occurrence: NG)
  Receive Date: 20140107
  Receipt Date: 20140109
  Transmission Date: 20141002
  Serious: Yes (Life-Threatening, Other)
  Sender: FDA-Public Use
  Company Number: PHHY2013NG154827

PATIENT
  Age: 46 Year
  Sex: Male

DRUGS (6)
  1. CLOZAPINE [Suspect]
     Indication: SCHIZOPHRENIA
     Dosage: 300 MG, DAILY
  2. HALOPERIDOL [Concomitant]
  3. CHLORPROMAZINE [Concomitant]
  4. OLANZAPINE [Concomitant]
  5. FLUPHENAZINE DECANOATE [Concomitant]
  6. CARBAMAZEPINE [Concomitant]

REACTIONS (6)
  - Upper gastrointestinal haemorrhage [Unknown]
  - Haematemesis [Recovering/Resolving]
  - Chest pain [Unknown]
  - Abdominal pain upper [Unknown]
  - Haematocrit decreased [Unknown]
  - Circulatory collapse [Unknown]
